FAERS Safety Report 7766773-5 (Version None)
Quarter: 2011Q3

REPORT INFORMATION
  Report Type: 
  Country: None (occurrence: None)
  Receive Date: 20110922
  Receipt Date: 20110314
  Transmission Date: 20111222
  Serious: No
  Sender: FDA-Public Use
  Company Number: US-ASTRAZENECA-2011SE14669

PATIENT
  Age: 37 Year
  Sex: Male

DRUGS (3)
  1. TOPROL-XL [Concomitant]
  2. SEROQUEL XR [Suspect]
     Route: 048
  3. NEXIUM [Concomitant]

REACTIONS (2)
  - MANIA [None]
  - PANIC ATTACK [None]
